FAERS Safety Report 4830073-3 (Version None)
Quarter: 2005Q4

REPORT INFORMATION
  Report Type: 
  Country: None (occurrence: None)
  Receive Date: 20051114
  Receipt Date: 20051102
  Transmission Date: 20060501
  Serious: Yes (Other)
  Sender: FDA-Public Use
  Company Number: 2005150086

PATIENT
  Age: 55 Year
  Sex: Female
  Weight: 70 kg

DRUGS (5)
  1. NICORETTE [Suspect]
     Dosage: UNSPECIFIED, TRANSDERMAL
     Route: 062
     Dates: start: 20050307
  2. ATORVASTATIN CALCIUM [Concomitant]
  3. ZOPICLONE (ZOPICLONE) [Concomitant]
  4. BENDROFLUMETHIAZIDE (BENDROFLUMETHIAZIDE) [Concomitant]
  5. PRAVASTATIN [Concomitant]

REACTIONS (5)
  - ANXIETY [None]
  - FEELING ABNORMAL [None]
  - HEADACHE [None]
  - PALPITATIONS [None]
  - PARAESTHESIA [None]
